FAERS Safety Report 19147060 (Version 1)
Quarter: 2021Q2

REPORT INFORMATION
  Report Type: Other
  Country: CN (occurrence: CN)
  Receive Date: 20210416
  Receipt Date: 20210416
  Transmission Date: 20210717
  Serious: Yes (Other)
  Sender: FDA-Public Use
  Company Number: CN-ROCHE-2806795

PATIENT

DRUGS (8)
  1. BEVACIZUMAB. [Suspect]
     Active Substance: BEVACIZUMAB
     Indication: EGFR GENE MUTATION
     Route: 065
  2. BEVACIZUMAB. [Suspect]
     Active Substance: BEVACIZUMAB
     Indication: METASTASES TO CENTRAL NERVOUS SYSTEM
  3. ICOTINIB [Suspect]
     Active Substance: ICOTINIB
     Indication: EGFR GENE MUTATION
     Route: 048
  4. SODIUM CHLORIDE. [Concomitant]
     Active Substance: SODIUM CHLORIDE
     Route: 041
  5. ICOTINIB [Suspect]
     Active Substance: ICOTINIB
     Indication: METASTASES TO CENTRAL NERVOUS SYSTEM
  6. MEGESTROL [Concomitant]
     Active Substance: MEGESTROL
     Indication: INCREASED APPETITE
     Route: 048
  7. BEVACIZUMAB. [Suspect]
     Active Substance: BEVACIZUMAB
     Indication: NON-SMALL CELL LUNG CANCER
  8. ICOTINIB [Suspect]
     Active Substance: ICOTINIB
     Indication: NON-SMALL CELL LUNG CANCER

REACTIONS (9)
  - Hypertension [Unknown]
  - Rash [Unknown]
  - Haemorrhage [Unknown]
  - Liver injury [Unknown]
  - Diarrhoea [Unknown]
  - Arrhythmia [Unknown]
  - Pruritus [Unknown]
  - Fatigue [Unknown]
  - Dermatitis allergic [Unknown]
